FAERS Safety Report 7484140-9 (Version None)
Quarter: 2011Q2

REPORT INFORMATION
  Report Type: 
  Country: None (occurrence: None)
  Receive Date: 20110517
  Receipt Date: 20110504
  Transmission Date: 20111010
  Serious: Yes (Other)
  Sender: FDA-Public Use
  Company Number: GB-ELI_LILLY_AND_COMPANY-GB201105000859

PATIENT
  Age: 51 Year
  Sex: Male

DRUGS (2)
  1. FLUOXETINE [Suspect]
     Dosage: 40 MG, UNK
     Route: 048
  2. FLUOXETINE [Suspect]
     Indication: DEPRESSION
     Dosage: 2 MG, UNK
     Route: 048

REACTIONS (5)
  - LOSS OF CONSCIOUSNESS [None]
  - SYNCOPE [None]
  - PRESYNCOPE [None]
  - SINUS BRADYCARDIA [None]
  - HYPOTENSION [None]
